FAERS Safety Report 15933591 (Version 1)
Quarter: 2019Q1

REPORT INFORMATION
  Report Type: Spontaneous
  Country: GB (occurrence: GB)
  Receive Date: 20190207
  Receipt Date: 20190207
  Transmission Date: 20190417
  Serious: Yes (Disabling, Other)
  Sender: FDA-Public Use
  Company Number: GB-009507513-2010SP030007

PATIENT
  Age: 30 Year
  Sex: Female
  Weight: 60 kg

DRUGS (2)
  1. IMPLANON [Suspect]
     Active Substance: ETONOGESTREL
     Indication: CONTRACEPTION
     Route: 058
     Dates: start: 200908
  2. CHAMPIX [Interacting]
     Active Substance: VARENICLINE TARTRATE
     Indication: SMOKING CESSATION THERAPY
     Dosage: 500 UG, 2X/DAY
     Route: 048
     Dates: start: 201001, end: 201005

REACTIONS (2)
  - Drug interaction [Recovering/Resolving]
  - Polymenorrhoea [Recovering/Resolving]

NARRATIVE: CASE EVENT DATE: 201002
